FAERS Safety Report 7887999-6 (Version None)
Quarter: 2011Q4

REPORT INFORMATION
  Report Type: 
  Country: None (occurrence: None)
  Receive Date: 20111103
  Receipt Date: 20111019
  Transmission Date: 20120403
  Serious: Yes (Other)
  Sender: FDA-Public Use
  Company Number: US-ENDO PHARMACEUTICALS INC.-OPIR20110070

PATIENT
  Age: 26 Year
  Sex: Male

DRUGS (1)
  1. OPANA [Suspect]
     Indication: DRUG DEPENDENCE
     Dosage: UNK

REACTIONS (1)
  - DRUG DEPENDENCE [None]
